FAERS Safety Report 8600948-8 (Version None)
Quarter: 2012Q3

REPORT INFORMATION
  Report Type: 
  Country: None (occurrence: None)
  Receive Date: 20120805
  Receipt Date: 20120723
  Transmission Date: 20120928
  Serious: Yes (Hospitalization)
  Sender: FDA-Public Use
  Company Number: AUR-APL-2012-03277

PATIENT
  Age: 34 Year
  Sex: Female

DRUGS (5)
  1. IMIPENEM (IMIPENEM) [Suspect]
     Indication: ANTIBIOTIC THERAPY
     Dosage: UNKNOWN
  2. TACROLIMUS [Suspect]
     Indication: IMMUNOSUPPRESSION
     Dosage: UNKNOWN
  3. MYCOPHENOLATE MOFETIL [Suspect]
     Indication: IMMUNOSUPPRESSION
     Dosage: UNKNOWN
  4. FLUCONAZOLE [Suspect]
     Indication: ANTIFUNGAL PROPHYLAXIS
     Dosage: 100 MG, DAY
  5. VANCOMYCIN [Suspect]
     Indication: ANTIBIOTIC THERAPY
     Dosage: UNKNOWN

REACTIONS (9)
  - HAEMODYNAMIC INSTABILITY [None]
  - CULTURE WOUND POSITIVE [None]
  - ANTIBIOTIC RESISTANT STAPHYLOCOCCUS TEST POSITIVE [None]
  - PARENTERAL NUTRITION [None]
  - SEPTIC SHOCK [None]
  - GENERAL PHYSICAL HEALTH DETERIORATION [None]
  - SYSTEMIC CANDIDA [None]
  - ABDOMINAL PAIN [None]
  - DYSPEPSIA [None]
